FAERS Safety Report 17056549 (Version 6)
Quarter: 2020Q1

REPORT INFORMATION
  Report Type: Report from Study
  Country: AU (occurrence: AU)
  Receive Date: 20191121
  Receipt Date: 20200110
  Transmission Date: 20200409
  Serious: No
  Sender: FDA-Public Use
  Company Number: AU-BEH-2019109626

PATIENT
  Age: 29 Year
  Sex: Male
  Weight: 96 kg

DRUGS (8)
  1. HIZENTRA [Suspect]
     Active Substance: HUMAN IMMUNOGLOBULIN G
     Indication: PRIMARY IMMUNODEFICIENCY SYNDROME
     Dosage: 10 GRAM (50 ML), QW
     Route: 058
     Dates: start: 20191118
  2. HIZENTRA [Suspect]
     Active Substance: HUMAN IMMUNOGLOBULIN G
     Dosage: 10 GRAM, TOT
     Route: 058
     Dates: start: 20191125, end: 20191125
  3. HIZENTRA [Suspect]
     Active Substance: HUMAN IMMUNOGLOBULIN G
     Dosage: 10 GRAM, QW
     Route: 058
     Dates: start: 20191125, end: 20191126
  4. PRISTIQ EXTENDED-RELEASE [Concomitant]
     Active Substance: DESVENLAFAXINE SUCCINATE
     Dosage: 100 MILLIGRAM, QD
  5. HIZENTRA [Suspect]
     Active Substance: HUMAN IMMUNOGLOBULIN G
     Dosage: 10 GRAM, QW
     Route: 058
     Dates: start: 20191202
  6. HIZENTRA [Suspect]
     Active Substance: HUMAN IMMUNOGLOBULIN G
     Dosage: 10 GRAM, QW
     Route: 058
  7. HIZENTRA [Suspect]
     Active Substance: HUMAN IMMUNOGLOBULIN G
     Dosage: 10 GRAM (50 ML), QW
     Route: 058
     Dates: start: 20191125
  8. DOXYCYCLIN [DOXYCYCLINE HYCLATE] [Concomitant]
     Dosage: 50 MILLIGRAM, QD

REACTIONS (21)
  - Headache [Recovering/Resolving]
  - Injection site erythema [Recovered/Resolved]
  - Nasal congestion [Recovering/Resolving]
  - Injection site haemorrhage [Not Recovered/Not Resolved]
  - Injection site haemorrhage [Not Recovered/Not Resolved]
  - Injection site erythema [Recovered/Resolved]
  - Sinusitis [Recovering/Resolving]
  - Injection site swelling [Recovered/Resolved]
  - Injection site extravasation [Recovered/Resolved]
  - Chest discomfort [Recovering/Resolving]
  - Infusion site swelling [Unknown]
  - Fatigue [Recovering/Resolving]
  - Productive cough [Recovering/Resolving]
  - Injection site swelling [Recovered/Resolved]
  - Influenza like illness [Recovering/Resolving]
  - Infusion site extravasation [Recovered/Resolved]
  - Injection site erythema [Recovered/Resolved]
  - Administration site erythema [Recovered/Resolved]
  - Oropharyngeal pain [Recovering/Resolving]
  - Headache [Recovering/Resolving]
  - Infusion site mass [Unknown]

NARRATIVE: CASE EVENT DATE: 201911
